FAERS Safety Report 6745758-1 (Version None)
Quarter: 2010Q2

REPORT INFORMATION
  Report Type: 
  Country: None (occurrence: None)
  Receive Date: 20100528
  Receipt Date: 20100519
  Transmission Date: 20101027
  Serious: Yes (Other)
  Sender: FDA-Public Use
  Company Number: PHHY2010US32748

PATIENT
  Sex: Female

DRUGS (12)
  1. ENABLEX [Suspect]
     Route: 048
  2. DILTIAZEM [Concomitant]
  3. GABAPENTIN [Concomitant]
  4. MELOXICAM [Concomitant]
  5. ASPIRIN [Concomitant]
  6. PLAVIX [Concomitant]
  7. FENOFIBRATE [Concomitant]
  8. LEXAPRO [Concomitant]
  9. BYSTOLIC [Concomitant]
  10. LISINOPRIL [Concomitant]
  11. XANAX [Concomitant]
  12. ZOCOR [Concomitant]

REACTIONS (5)
  - CEREBROVASCULAR ACCIDENT [None]
  - HYPOPHAGIA [None]
  - MALAISE [None]
  - NAUSEA [None]
  - POLLAKIURIA [None]
